FAERS Safety Report 9935181 (Version 2)
Quarter: 2014Q1

REPORT INFORMATION
  Report Type: Spontaneous
  Country: CH (occurrence: CH)
  Receive Date: 20140228
  Receipt Date: 20140307
  Transmission Date: 20141002
  Serious: Yes (Hospitalization)
  Sender: FDA-Public Use
  Company Number: CH-009507513-1402CHE011103

PATIENT
  Age: 52 Year
  Sex: Male

DRUGS (3)
  1. REMERON [Suspect]
     Dosage: UNK, ONCE
     Dates: start: 20131123, end: 20131123
  2. ALCOHOL [Suspect]
     Dosage: UNK, ONCE
     Dates: start: 20131123, end: 20131123
  3. HEMP [Suspect]
     Dosage: UNK, ONCE
     Dates: start: 20131123, end: 20131123

REACTIONS (3)
  - Drug abuse [Recovered/Resolved]
  - Agitation [Recovered/Resolved]
  - Electrocardiogram repolarisation abnormality [Recovered/Resolved]
